FAERS Safety Report 15833188 (Version 2)
Quarter: 2019Q3

REPORT INFORMATION
  Report Type: Report from Study
  Country: US (occurrence: US)
  Receive Date: 20190116
  Receipt Date: 20190812
  Transmission Date: 20191004
  Serious: Yes (Hospitalization, Other)
  Sender: FDA-Public Use
  Company Number: US-SHIRE-US201849403

PATIENT
  Age: 80 Year
  Sex: Male
  Weight: 122 kg

DRUGS (2)
  1. NATPARA (PARATHYROID HORMONE) [Suspect]
     Active Substance: PARATHYROID HORMONE
     Indication: HYPERPARATHYROIDISM
     Dosage: 50 ?G, 1X/DAY:QD (50 ?G (INJECT 50MCG UNDER THE SKIN INTO THIGH)
     Route: 058
     Dates: start: 20151029
  2. NATPARA (PARATHYROID HORMONE) [Suspect]
     Active Substance: PARATHYROID HORMONE
     Indication: POST PROCEDURAL HYPOPARATHYROIDISM

REACTIONS (6)
  - Dehydration [Unknown]
  - Renal failure [Unknown]
  - Cardiac disorder [Unknown]
  - Malaise [Recovered/Resolved]
  - Blood calcium increased [Recovered/Resolved]
  - Gastrointestinal disorder [Unknown]

NARRATIVE: CASE EVENT DATE: 20190715
